FAERS Safety Report 13470937 (Version 1)
Quarter: 2017Q2

REPORT INFORMATION
  Report Type: Spontaneous
  Country: US (occurrence: US)
  Receive Date: 20170424
  Receipt Date: 20170424
  Transmission Date: 20170830
  Serious: No
  Sender: FDA-Public Use
  Company Number: US-TEVA-727020ACC

PATIENT
  Age: 68 Year
  Sex: Female

DRUGS (1)
  1. LOSARTAN POTASSIUM TABLETS, USP [Suspect]
     Active Substance: LOSARTAN POTASSIUM
     Indication: HYPERTENSION
     Dates: start: 20160610, end: 20160710

REACTIONS (2)
  - Influenza like illness [Recovered/Resolved]
  - Drug ineffective [Recovered/Resolved]

NARRATIVE: CASE EVENT DATE: 20160610
